FAERS Safety Report 9507573 (Version 2)
Quarter: 2013Q3

REPORT INFORMATION
  Report Type: Spontaneous
  Country: GB (occurrence: GB)
  Receive Date: 20130909
  Receipt Date: 20130909
  Transmission Date: 20140515
  Serious: Yes (Hospitalization)
  Sender: FDA-Public Use
  Company Number: GB-ROCHE-1249946

PATIENT
  Age: 11 Year
  Sex: Male
  Weight: 44 kg

DRUGS (7)
  1. NUTROPIN [Suspect]
     Indication: GROWTH HORMONE DEFICIENCY
     Route: 058
     Dates: start: 20130522
  2. DECAPEPTYL [Concomitant]
     Route: 065
     Dates: start: 2011
  3. NOVOMIX [Concomitant]
     Dosage: 14 UNITS
     Route: 065
     Dates: start: 2010
  4. SPIRONOLACTONE [Concomitant]
     Route: 065
     Dates: start: 2010
  5. ANASTROZOLE [Concomitant]
     Route: 065
     Dates: start: 2010
  6. HYDROCORTISONE [Concomitant]
     Route: 065
     Dates: start: 2010
  7. LYRINEL XL [Concomitant]
     Route: 065
     Dates: start: 2012

REACTIONS (1)
  - Blood glucose increased [Recovered/Resolved]
